FAERS Safety Report 8202730-2 (Version None)
Quarter: 2012Q1

REPORT INFORMATION
  Report Type: 
  Country: None (occurrence: None)
  Receive Date: 20120312
  Receipt Date: 20120301
  Transmission Date: 20120608
  Serious: Yes (Other)
  Sender: FDA-Public Use
  Company Number: US-ASTRAZENECA-2012SE14600

PATIENT
  Age: 76 Year
  Sex: Female
  Weight: 91.2 kg

DRUGS (3)
  1. NEXIUM [Suspect]
     Indication: GASTROOESOPHAGEAL REFLUX DISEASE
     Route: 048
  2. PLAVIX [Concomitant]
  3. DILTIAZEM HCL [Concomitant]

REACTIONS (2)
  - VOCAL CORD PARALYSIS [None]
  - COLON CANCER [None]
